FAERS Safety Report 23403389 (Version 1)
Quarter: 2024Q1

REPORT INFORMATION
  Report Type: Spontaneous
  Country: None (occurrence: FR)
  Receive Date: 20240116
  Receipt Date: 20240116
  Transmission Date: 20240410
  Serious: Yes (Life-Threatening, Hospitalization)
  Sender: FDA-Public Use
  Company Number: FR-B.Braun Medical Inc.-2151261

PATIENT
  Age: 18 Year
  Sex: Female

DRUGS (1)
  1. ACETAMINOPHEN [Suspect]
     Active Substance: ACETAMINOPHEN

REACTIONS (4)
  - Hypothermia [None]
  - Intentional overdose [None]
  - Gastrointestinal disorder [None]
  - Off label use [None]
